FAERS Safety Report 8616968-3 (Version None)
Quarter: 2012Q3

REPORT INFORMATION
  Report Type: 
  Country: None (occurrence: None)
  Receive Date: 20120823
  Receipt Date: 20120813
  Transmission Date: 20120928
  Serious: No
  Sender: FDA-Public Use
  Company Number: US-009507513-1208USA006065

PATIENT

DRUGS (1)
  1. NEXPLANON [Suspect]
     Indication: CONTRACEPTION
     Dosage: UNK
     Route: 059
     Dates: start: 20120710

REACTIONS (4)
  - MUSCLE SPASMS [None]
  - NAUSEA [None]
  - ABDOMINAL DISTENSION [None]
  - WEIGHT INCREASED [None]
